FAERS Safety Report 9785619 (Version 4)
Quarter: 2014Q1

REPORT INFORMATION
  Report Type: Report from Study
  Country: FR (occurrence: FR)
  Receive Date: 20131227
  Receipt Date: 20140131
  Transmission Date: 20141002
  Serious: Yes (Disabling)
  Sender: FDA-Public Use
  Company Number: FR-PFIZER INC-2013245115

PATIENT
  Age: 54 Year
  Sex: Female

DRUGS (2)
  1. SUNITINIB MALATE [Suspect]
     Indication: CARCINOID TUMOUR OF THE GASTROINTESTINAL TRACT
     Dosage: 37.5 MG, DAILY
     Route: 048
     Dates: start: 20130805, end: 20130820
  2. LANREOTIDE ACETATE [Concomitant]
     Indication: CARCINOID TUMOUR OF THE GASTROINTESTINAL TRACT
     Dosage: 120 MG, MONTHLY
     Dates: start: 20130805

REACTIONS (1)
  - Sudden hearing loss [Not Recovered/Not Resolved]
